FAERS Safety Report 8259424-7 (Version None)
Quarter: 2012Q2

REPORT INFORMATION
  Report Type: 
  Country: None (occurrence: None)
  Receive Date: 20120404
  Receipt Date: 20120328
  Transmission Date: 20120825
  Serious: No
  Sender: FDA-Public Use
  Company Number: US-BAYER-2012-032533

PATIENT
  Age: 68 Year
  Sex: Female
  Weight: 86 kg

DRUGS (9)
  1. ALEVE (CAPLET) [Suspect]
     Indication: ARTHRITIS
     Dosage: 1 U, BID
     Route: 048
     Dates: start: 20111001, end: 20120301
  2. IRON SUPPLEMENT [Concomitant]
  3. SIMVASTATIN [Concomitant]
  4. LOSARTAN POTASSIUM [Concomitant]
  5. ASPIRIN [Concomitant]
  6. METFORMIN HCL [Concomitant]
  7. METOPROLOL TARTRATE [Concomitant]
  8. NORVASC [Concomitant]
  9. INSULIN [Concomitant]

REACTIONS (1)
  - NO ADVERSE EVENT [None]
